FAERS Safety Report 8266345-2 (Version None)
Quarter: 2012Q2

REPORT INFORMATION
  Report Type: 
  Country: None (occurrence: None)
  Receive Date: 20120406
  Receipt Date: 20120328
  Transmission Date: 20120825
  Serious: Yes (Other)
  Sender: FDA-Public Use
  Company Number: US-FRI-1000029168

PATIENT
  Sex: Female

DRUGS (4)
  1. LEXAPRO [Suspect]
     Route: 048
  2. PROZAC [Concomitant]
     Dosage: 10 MG
     Route: 048
  3. ESGIC-PLUS [Concomitant]
     Dosage: 500 MG/50 MG/40 MG Q6H
     Route: 048
  4. NATACHEW [Concomitant]
     Dosage: 1 MG
     Route: 048

REACTIONS (3)
  - MATERNAL EXPOSURE DURING PREGNANCY [None]
  - GESTATIONAL HYPERTENSION [None]
  - PREGNANCY [None]
